FAERS Safety Report 9353112 (Version 1)
Quarter: 2013Q2

REPORT INFORMATION
  Report Type: Spontaneous
  Country: US (occurrence: None)
  Receive Date: 20130617
  Receipt Date: 20130617
  Transmission Date: 20140414
  Serious: Yes (Life-Threatening, Hospitalization)
  Sender: FDA-Public Use
  Company Number: None

PATIENT
  Age: 48 Year
  Sex: Female
  Weight: 90.72 kg

DRUGS (1)
  1. DICLOFENAC SODIUM DELAYED-RELEASE [Suspect]
     Indication: JOINT SWELLING
     Dosage: 1 PILL 7 PM  ON 5-10-13.
     Route: 048
     Dates: start: 20130510

REACTIONS (1)
  - Atrial fibrillation [None]
